FAERS Safety Report 24221002 (Version 1)
Quarter: 2024Q3

REPORT INFORMATION
  Report Type: Spontaneous
  Country: US (occurrence: US)
  Receive Date: 20240819
  Receipt Date: 20240819
  Transmission Date: 20241017
  Serious: No
  Sender: ENDO
  Company Number: ENDB23-02799

PATIENT
  Age: 57 Year
  Sex: Female

DRUGS (1)
  1. QWO [Suspect]
     Active Substance: COLLAGENASE CLOSTRIDIUM HISTOLYTICUM-AAES
     Indication: Cellulite
     Dosage: 8 ML, EVERY FOUR WEEKS
     Route: 051
     Dates: start: 20211209

REACTIONS (2)
  - Skin hyperpigmentation [Not Recovered/Not Resolved]
  - Contusion [Not Recovered/Not Resolved]

NARRATIVE: CASE EVENT DATE: 20211201
